FAERS Safety Report 24119681 (Version 2)
Quarter: 2024Q3

REPORT INFORMATION
  Report Type: Spontaneous
  Country: NL (occurrence: NL)
  Receive Date: 20240722
  Receipt Date: 20240906
  Transmission Date: 20241017
  Serious: Yes (Other)
  Sender: CELLTRION
  Company Number: NL-CELLTRION INC.-2024NL017235

PATIENT

DRUGS (11)
  1. ADALIMUMAB [Suspect]
     Active Substance: ADALIMUMAB
     Indication: Crohn^s disease
     Route: 058
  2. FILGOTINIB [Suspect]
     Active Substance: FILGOTINIB
     Indication: Product used for unknown indication
     Dosage: UNK
     Route: 065
     Dates: start: 202203, end: 202212
  3. CIPROFLOXACIN [Suspect]
     Active Substance: CIPROFLOXACIN
     Indication: Product used for unknown indication
     Route: 065
  4. PREDNISOLONE ACETATE [Suspect]
     Active Substance: PREDNISOLONE ACETATE
     Indication: Product used for unknown indication
     Dosage: FORM STRENGTH:10 MILLIGRAM
     Route: 065
  5. METRONIDAZOLE SODIUM [Suspect]
     Active Substance: METRONIDAZOLE SODIUM
     Indication: Product used for unknown indication
     Route: 065
  6. THIOGUANINE ANHYDROUS [Suspect]
     Active Substance: THIOGUANINE ANHYDROUS
     Indication: Product used for unknown indication
     Dosage: UNK
     Route: 065
     Dates: start: 2021
  7. ETRASIMOD [Concomitant]
     Active Substance: ETRASIMOD
     Indication: Product used for unknown indication
  8. VEDOLIZUMAB [Concomitant]
     Active Substance: VEDOLIZUMAB
     Indication: Product used for unknown indication
     Dosage: UNK
     Dates: start: 202111
  9. AZATHIOPRINE [Concomitant]
     Active Substance: AZATHIOPRINE
     Indication: Product used for unknown indication
     Dosage: UNK
     Dates: start: 1993, end: 2005
  10. STELARA [Concomitant]
     Active Substance: USTEKINUMAB
     Indication: Product used for unknown indication
     Dosage: UNK
     Dates: start: 2019
  11. LOPERAMID [LOPERAMIDE HYDROCHLORIDE] [Concomitant]
     Indication: Product used for unknown indication

REACTIONS (10)
  - Large intestine erosion [Unknown]
  - Ileal ulcer [Unknown]
  - Enteritis [Unknown]
  - Drug intolerance [Unknown]
  - Appetite disorder [Unknown]
  - Weight decreased [Unknown]
  - Fatigue [Unknown]
  - Abdominal pain [Unknown]
  - Therapeutic product effect incomplete [Unknown]
  - Therapeutic product effect incomplete [Unknown]

NARRATIVE: CASE EVENT DATE: 20210101
